FAERS Safety Report 12449480 (Version 3)
Quarter: 2016Q2

REPORT INFORMATION
  Report Type: Spontaneous
  Country: MY (occurrence: MY)
  Receive Date: 20160608
  Receipt Date: 20160630
  Transmission Date: 20160815
  Serious: Yes (Other)
  Sender: FDA-Public Use
  Company Number: MY-BIOGEN-2016BI00245496

PATIENT
  Age: 63 Year
  Sex: Male

DRUGS (2)
  1. FAMPYRA [Suspect]
     Active Substance: DALFAMPRIDINE
     Indication: MYASTHENIC SYNDROME
     Route: 065
     Dates: start: 2014
  2. MESTINON [Concomitant]
     Active Substance: PYRIDOSTIGMINE BROMIDE
     Indication: PRODUCT USED FOR UNKNOWN INDICATION
     Route: 065

REACTIONS (4)
  - Lung infection [Unknown]
  - Asthma [Unknown]
  - Intentional product use issue [Unknown]
  - Lymphocyte count decreased [Recovered/Resolved]
